FAERS Safety Report 5608991-8 (Version None)
Quarter: 2008Q1

REPORT INFORMATION
  Report Type: 
  Country: None (occurrence: None)
  Receive Date: 20080131
  Receipt Date: 20080124
  Transmission Date: 20080703
  Serious: Yes (Hospitalization, Other)
  Sender: FDA-Public Use
  Company Number: PHBS2008BR01324

PATIENT
  Sex: Female
  Weight: 74 kg

DRUGS (4)
  1. MYFORTIC [Suspect]
     Indication: RENAL AND PANCREAS TRANSPLANT
     Dosage: UNK, BID
     Route: 048
     Dates: start: 20040101, end: 20050901
  2. SANDIMMUNE [Concomitant]
     Indication: RENAL AND PANCREAS TRANSPLANT
     Dosage: 50 MG, BID
     Route: 048
     Dates: start: 19960101
  3. PREDNISONE TAB [Concomitant]
     Indication: RENAL AND PANCREAS TRANSPLANT
     Dosage: 5 MG, QD
     Route: 048
     Dates: start: 19961001
  4. SYNTHROID [Concomitant]
     Dosage: 100 MG, QD
     Route: 048
     Dates: start: 19970601

REACTIONS (4)
  - ALANINE AMINOTRANSFERASE INCREASED [None]
  - ASPARTATE AMINOTRANSFERASE INCREASED [None]
  - BURNS SECOND DEGREE [None]
  - HYPERTENSION [None]
